FAERS Safety Report 8898837 (Version 3)
Quarter: 2012Q4

REPORT INFORMATION
  Report Type: Report from Study
  Country: BR (occurrence: BR)
  Receive Date: 20121109
  Receipt Date: 20121226
  Transmission Date: 20130627
  Serious: Yes (Life-Threatening, Other)
  Sender: FDA-Public Use
  Company Number: BR-BRISTOL-MYERS SQUIBB COMPANY-17091802

PATIENT
  Age: 29 Year
  Sex: Female
  Weight: 45 kg

DRUGS (5)
  1. PACLITAXEL [Suspect]
     Indication: GASTRIC CANCER
     Dosage: On days 1,8 + 15 every 4 wk
Last dose: 10-Oct-12
Interrupted on 23Oct12 and restarted on 31OCt12
     Route: 042
     Dates: start: 20120817, end: 20121010
  2. ONDANSETRON [Concomitant]
     Dates: start: 20120817
  3. MORPHINE [Concomitant]
     Dates: start: 20120901
  4. METOCLOPRAMIDE HCL [Concomitant]
     Dates: start: 20120817
  5. OMEPRAZOLE [Concomitant]
     Dates: start: 20120727

REACTIONS (2)
  - Dehydration [Recovered/Resolved]
  - Diarrhoea [Recovered/Resolved]
